FAERS Safety Report 16586280 (Version 1)
Quarter: 2019Q3

REPORT INFORMATION
  Report Type: Spontaneous
  Country: DE (occurrence: DE)
  Receive Date: 20190717
  Receipt Date: 20190717
  Transmission Date: 20191004
  Serious: Yes (Life-Threatening, Hospitalization)
  Sender: FDA-Public Use
  Company Number: DE-TEVA-2019-DE-1078021

PATIENT
  Age: 41 Year
  Sex: Male

DRUGS (3)
  1. PANTOPRAZOL [Concomitant]
     Active Substance: PANTOPRAZOLE SODIUM
     Dosage: B.B., TABLETTEN
     Route: 048
  2. NOVAMINSULFON [Concomitant]
     Active Substance: METAMIZOLE
     Dosage: 500 MG, B.B., TABLETTEN
     Route: 048
  3. IBUPROFEN. [Suspect]
     Active Substance: IBUPROFEN
     Dosage: 2 G, TGL., TABLETTEN
     Route: 048

REACTIONS (6)
  - Anuria [Unknown]
  - Pyrexia [Unknown]
  - Headache [Unknown]
  - Abdominal pain [Unknown]
  - Diarrhoea [Unknown]
  - Chills [Unknown]
